FAERS Safety Report 10104305 (Version 2)
Quarter: 2014Q2

REPORT INFORMATION
  Report Type: Other
  Country: US (occurrence: US)
  Receive Date: 20140424
  Receipt Date: 20140612
  Transmission Date: 20141212
  Serious: Yes (Hospitalization, Other)
  Sender: FDA-Public Use
  Company Number: US-GSKPPD-2014GSK001406

PATIENT
  Sex: 0

DRUGS (4)
  1. AVANDIA [Suspect]
     Indication: DIABETES MELLITUS
     Dosage: AVANDIA WAS NOT LISTED AMONG THE PATIENTS DISCHARGE RECORDS.
     Route: 048
  2. AVANDAMET [Suspect]
     Indication: DIABETES MELLITUS
     Dosage: 2/500MG
     Dates: start: 20031126, end: 20040124
  3. CORDARONE [Concomitant]
  4. ASPIRIN [Concomitant]

REACTIONS (2)
  - Angina unstable [None]
  - Coronary artery restenosis [Recovered/Resolved]
